FAERS Safety Report 4773542-7 (Version None)
Quarter: 2005Q3

REPORT INFORMATION
  Report Type: 
  Country: None (occurrence: None)
  Receive Date: 20050920
  Receipt Date: 20041028
  Transmission Date: 20060218
  Serious: No
  Sender: FDA-Public Use
  Company Number: US-BRISTOL-MYERS SQUIBB COMPANY-12748638

PATIENT
  Age: 33 Year
  Sex: Male
  Weight: 104 kg

DRUGS (1)
  1. BUSPAR [Suspect]
     Indication: GENERALISED ANXIETY DISORDER
     Route: 048
     Dates: start: 20041025

REACTIONS (1)
  - ERECTILE DYSFUNCTION [None]
